FAERS Safety Report 8528811-1 (Version None)
Quarter: 2012Q3

REPORT INFORMATION
  Report Type: 
  Country: None (occurrence: None)
  Receive Date: 20120723
  Receipt Date: 20120717
  Transmission Date: 20120928
  Serious: Yes (Hospitalization)
  Sender: FDA-Public Use
  Company Number: BR-SHIRE-SPV1-2012-00661

PATIENT
  Age: 6 Year
  Sex: Male

DRUGS (1)
  1. LISDEXAMFETAMINE DIMESYLATE [Suspect]
     Indication: ACCIDENTAL DRUG INTAKE BY CHILD
     Dosage: 30 MG, ONE DOSE
     Route: 048
     Dates: start: 20120716, end: 20120716

REACTIONS (8)
  - RESTLESSNESS [None]
  - BLOOD PRESSURE DECREASED [None]
  - ACCIDENTAL DRUG INTAKE BY CHILD [None]
  - ANXIETY [None]
  - VISION BLURRED [None]
  - DYSPNOEA [None]
  - TIC [None]
  - INSOMNIA [None]
